FAERS Safety Report 14786711 (Version 15)
Quarter: 2019Q3

REPORT INFORMATION
  Report Type: Report from Study
  Country: US (occurrence: US)
  Receive Date: 20180420
  Receipt Date: 20190903
  Transmission Date: 20191004
  Serious: Yes (Hospitalization)
  Sender: FDA-Public Use
  Company Number: US-ACTELION-A-US2018-170797

PATIENT
  Age: 2 Year
  Sex: Female
  Weight: 14.97 kg

DRUGS (27)
  1. BOSENTAN TABLET 32 MG PED US [Suspect]
     Active Substance: BOSENTAN
     Dosage: 32 MG, BID BY MOUTH OR BY G-TUBE
     Route: 048
  2. SPIRONOLACTONE. [Concomitant]
     Active Substance: SPIRONOLACTONE
     Dosage: 25 MG, UNK
  3. TRIAMCINOLONE [Concomitant]
     Active Substance: TRIAMCINOLONE
  4. CIPROFLOXACIN. [Concomitant]
     Active Substance: CIPROFLOXACIN
     Dosage: 250 MG, UNK
  5. POLYETHYLENE GLYCOL [Concomitant]
     Active Substance: POLYETHYLENE GLYCOLS
  6. POLY-VI-SOL [Concomitant]
     Active Substance: VITAMINS
  7. LUBRI [Concomitant]
  8. BUMEX [Concomitant]
     Active Substance: BUMETANIDE
     Dosage: 0.5 MG, UNK
  9. DIURAL [Concomitant]
     Active Substance: FUROSEMIDE
     Dosage: 250/5 ML
  10. POTASSIUM CHLORIDE. [Concomitant]
     Active Substance: POTASSIUM CHLORIDE
  11. BOSENTAN TABLET 32 MG PED US [Suspect]
     Active Substance: BOSENTAN
     Indication: PULMONARY HYPERTENSION
     Dosage: 24 MG, BID BY MOUTH OR BY J-TUBE
     Route: 048
     Dates: start: 2018
  12. REVATIO [Suspect]
     Active Substance: SILDENAFIL CITRATE
     Indication: PRODUCT USED FOR UNKNOWN INDICATION
     Dosage: 10 MG/ML, TID
     Route: 065
  13. SODIUM CHLORIDE. [Concomitant]
     Active Substance: SODIUM CHLORIDE
  14. REVATIO [Suspect]
     Active Substance: SILDENAFIL CITRATE
     Dosage: 40 MG, TID
     Route: 065
  15. BANOPHEN [Concomitant]
     Active Substance: DIPHENHYDRAMINE HYDROCHLORIDE
  16. AQUAPHOR [Concomitant]
     Active Substance: PETROLATUM
  17. DESLORATADINE. [Concomitant]
     Active Substance: DESLORATADINE
  18. REMODULIN [Suspect]
     Active Substance: TREPROSTINIL
     Indication: PULMONARY HYPERTENSION
     Dosage: 82 NG/KG, PER MIN
     Route: 058
     Dates: start: 20180509
  19. IBUPROFEN. [Concomitant]
     Active Substance: IBUPROFEN
  20. MELATONIN [Concomitant]
     Active Substance: MELATONIN
  21. MULTIVITAMIN [Concomitant]
     Active Substance: VITAMINS
  22. DESITIN [Concomitant]
     Active Substance: ZINC OXIDE
  23. BETHKIS [Concomitant]
     Active Substance: TOBRAMYCIN
  24. ONDANSETRON [Concomitant]
     Active Substance: ONDANSETRON
  25. PULMOZYME [Concomitant]
     Active Substance: DORNASE ALFA
  26. BUDESONIDE. [Concomitant]
     Active Substance: BUDESONIDE
  27. PEDIA-LAX STOOL SOFTENER [Concomitant]

REACTIONS (17)
  - Catheter site pain [Unknown]
  - Oedema [Recovering/Resolving]
  - Hospitalisation [Unknown]
  - Vomiting [Unknown]
  - Respiratory distress [Unknown]
  - Heart rate increased [Unknown]
  - Blood urea increased [Unknown]
  - Fatigue [Unknown]
  - Bacterial infection [Unknown]
  - Diarrhoea [Unknown]
  - Weight decreased [Unknown]
  - Oxygen saturation decreased [Not Recovered/Not Resolved]
  - Heart rate decreased [Unknown]
  - Catheter site erythema [Recovered/Resolved]
  - Unevaluable event [Recovered/Resolved]
  - Adverse drug reaction [Recovered/Resolved]
  - Oxygen consumption increased [Unknown]

NARRATIVE: CASE EVENT DATE: 20180815
